FAERS Safety Report 25576258 (Version 3)
Quarter: 2025Q3

REPORT INFORMATION
  Report Type: Spontaneous
  Country: JP (occurrence: JP)
  Receive Date: 20250718
  Receipt Date: 20250811
  Transmission Date: 20251021
  Serious: Yes (Death, Life-Threatening, Hospitalization, Other)
  Sender: MACLEODS
  Company Number: JP-MACLEODS PHARMA-MAC2025054083

PATIENT

DRUGS (2)
  1. METFORMIN [Suspect]
     Active Substance: METFORMIN HYDROCHLORIDE
     Indication: Diabetes mellitus
     Route: 065
  2. DOCETAXEL [Suspect]
     Active Substance: DOCETAXEL
     Indication: Hormone-refractory prostate cancer
     Dosage: TRI-WEEKLY; 75 MG/M2, 125 MG/ BODY
     Route: 065

REACTIONS (16)
  - Septic shock [Unknown]
  - Ventricular fibrillation [Unknown]
  - Febrile neutropenia [Recovering/Resolving]
  - Pulseless electrical activity [Unknown]
  - Condition aggravated [Unknown]
  - Acute kidney injury [Recovering/Resolving]
  - Hyperkalaemia [Unknown]
  - Fatigue [Unknown]
  - Drug clearance decreased [Unknown]
  - Sepsis [Unknown]
  - Leukopenia [Recovering/Resolving]
  - Shock [Unknown]
  - Metabolic acidosis [Unknown]
  - Lactic acidosis [Fatal]
  - Decreased appetite [Unknown]
  - Dehydration [Recovering/Resolving]
